FAERS Safety Report 16227726 (Version 3)
Quarter: 2019Q4

REPORT INFORMATION
  Report Type: Spontaneous
  Country: US (occurrence: US)
  Receive Date: 20190423
  Receipt Date: 20191212
  Transmission Date: 20200122
  Serious: No
  Sender: FDA-Public Use
  Company Number: US-PFIZER INC-2019146843

PATIENT
  Age: 72 Year
  Sex: Female
  Weight: 104.31 kg

DRUGS (7)
  1. LYRICA [Suspect]
     Active Substance: PREGABALIN
     Indication: DIABETIC NEUROPATHY
     Dosage: 50 MG, [IN THE MORNING AND AT NIGHT]
  2. LYRICA [Suspect]
     Active Substance: PREGABALIN
     Dosage: 450 MG, DAILY (TAKE 1 CAPSULE (150 MG TOTAL) BY MOUTH AS DIRECTED. TAKE 3 PILLS DAILY FOR TOTAL OF )
     Route: 048
  3. LYRICA [Suspect]
     Active Substance: PREGABALIN
     Dosage: 100 MG, 2X/DAY
     Route: 048
     Dates: start: 201901
  4. LYRICA [Suspect]
     Active Substance: PREGABALIN
     Dosage: 100 MG, 2X/DAY
     Route: 048
     Dates: start: 20190401
  5. OXYCODONE [Concomitant]
     Active Substance: OXYCODONE
     Indication: PAIN
     Dosage: UNK
     Dates: start: 2018
  6. LYRICA [Suspect]
     Active Substance: PREGABALIN
     Dosage: 150 MG IN AM AND 100MG IN PM
     Route: 048
     Dates: start: 20190402
  7. LYRICA [Suspect]
     Active Substance: PREGABALIN
     Indication: PAIN
     Dosage: 100 MG, 1 CAPSULE IN PM FOR 2 WEEKS
     Dates: start: 201903

REACTIONS (1)
  - Drug ineffective [Unknown]
